FAERS Safety Report 24465602 (Version 1)
Quarter: 2024Q4

REPORT INFORMATION
  Report Type: Report from Study
  Country: US (occurrence: US)
  Receive Date: 20241018
  Receipt Date: 20241018
  Transmission Date: 20250114
  Serious: No
  Sender: ROCHE
  Company Number: US-ROCHE-3527828

PATIENT
  Age: 65 Year
  Sex: Female
  Weight: 63.5 kg

DRUGS (8)
  1. XOLAIR [Suspect]
     Active Substance: OMALIZUMAB
     Indication: Idiopathic urticaria
     Dosage: STRENGTH: 150 MG/ML; DATE OF LAST INJECTION: 19/MAY/2023
     Route: 058
  2. XOLAIR [Suspect]
     Active Substance: OMALIZUMAB
  3. MONTELUKAST [Concomitant]
     Active Substance: MONTELUKAST
     Route: 048
  4. ALLEGRA [Concomitant]
     Active Substance: FEXOFENADINE HYDROCHLORIDE
     Dosage: FREQUENCY TEXT:EVERY MORNING
     Route: 048
  5. ALBUTEROL [Concomitant]
     Active Substance: ALBUTEROL
  6. TRELEGY ELLIPTA [Concomitant]
     Active Substance: FLUTICASONE FUROATE\UMECLIDINIUM BROMIDE\VILANTEROL TRIFENATATE
  7. CETIRIZINE HYDROCHLORIDE [Concomitant]
     Active Substance: CETIRIZINE HYDROCHLORIDE
     Route: 048
  8. PROAIR HFA [Concomitant]
     Active Substance: ALBUTEROL SULFATE
     Dosage: FREQUENCY TEXT:EVERY 4-6 HOURS AS NEEDED
     Route: 045

REACTIONS (1)
  - Nasal congestion [Unknown]
